FAERS Safety Report 4619845-8 (Version None)
Quarter: 2005Q1

REPORT INFORMATION
  Report Type: 
  Country: None (occurrence: None)
  Receive Date: 20050328
  Receipt Date: 20050316
  Transmission Date: 20050727
  Serious: Yes (Other)
  Sender: FDA-Public Use
  Company Number: CA-JNJFOC-20050304385

PATIENT
  Sex: Female

DRUGS (7)
  1. REMICADE [Suspect]
     Indication: RHEUMATOID ARTHRITIS
     Dosage: RECEIVED A TOTAL OF 10 INFUSIONS
     Route: 042
  2. METHOTREXATE [Concomitant]
  3. PREMARIN [Concomitant]
  4. LASIX [Concomitant]
  5. PREDNISONE [Concomitant]
  6. VASOTEC [Concomitant]
  7. AMITRIPTYLINE [Concomitant]

REACTIONS (3)
  - BLOOD PRESSURE INCREASED [None]
  - CARDIOMEGALY [None]
  - OEDEMA PERIPHERAL [None]
